FAERS Safety Report 7740249-3 (Version None)
Quarter: 2011Q3

REPORT INFORMATION
  Report Type: 
  Country: None (occurrence: None)
  Receive Date: 20110909
  Receipt Date: 20110830
  Transmission Date: 20111222
  Serious: Yes (Other)
  Sender: FDA-Public Use
  Company Number: US-ROCHE-797746

PATIENT
  Sex: Female

DRUGS (2)
  1. PEGINTERFERON ALFA-2A [Suspect]
     Route: 065
     Dates: start: 20110615
  2. RIBAVIRIN [Suspect]
     Route: 065
     Dates: start: 20110615

REACTIONS (8)
  - ARTHRALGIA [None]
  - CONTUSION [None]
  - FULL BLOOD COUNT DECREASED [None]
  - DISABILITY [None]
  - SINUSITIS [None]
  - SENSITIVITY OF TEETH [None]
  - LYMPHADENOPATHY [None]
  - PAIN [None]
